FAERS Safety Report 6553025-4 (Version None)
Quarter: 2010Q1

REPORT INFORMATION
  Report Type: 
  Country: None (occurrence: None)
  Receive Date: 20100122
  Receipt Date: 20100119
  Transmission Date: 20100710
  Serious: Yes (Hospitalization)
  Sender: FDA-Public Use
  Company Number: SPV1-2010-00076

PATIENT
  Age: 14 Year
  Sex: Male

DRUGS (4)
  1. VYVANSE [Suspect]
     Indication: ATTENTION DEFICIT/HYPERACTIVITY DISORDER
     Dosage: 50 MG, 1X/DAY:GD, ORAL
     Route: 048
     Dates: start: 20100101, end: 20100101
  2. VYVANSE [Suspect]
     Indication: ATTENTION DEFICIT/HYPERACTIVITY DISORDER
     Dosage: 50 MG, 1X/DAY:GD, ORAL
     Route: 048
     Dates: end: 20100101
  3. ZITHROMAX [Concomitant]
  4. LORATADINE (LORATADINE) TABLET [Concomitant]

REACTIONS (3)
  - ABDOMINAL DISCOMFORT [None]
  - HEPATITIS [None]
  - OFF LABEL USE [None]
